FAERS Safety Report 25225513 (Version 1)
Quarter: 2025Q2

REPORT INFORMATION
  Report Type: Spontaneous
  Country: IT (occurrence: IT)
  Receive Date: 20250422
  Receipt Date: 20250422
  Transmission Date: 20250716
  Serious: Yes (Death, Hospitalization, Other)
  Sender: PFIZER
  Company Number: IT-PFIZER INC-PV202500047370

PATIENT
  Age: 73 Year
  Sex: Male

DRUGS (6)
  1. ETOPOSIDE [Suspect]
     Active Substance: ETOPOSIDE
     Indication: Follicular lymphoma stage III
     Dates: start: 2006
  2. MITOXANTRONE HYDROCHLORIDE [Suspect]
     Active Substance: MITOXANTRONE HYDROCHLORIDE
     Indication: Follicular lymphoma stage III
     Dates: start: 2006
  3. RITUXIMAB [Suspect]
     Active Substance: RITUXIMAB
     Indication: Follicular lymphoma stage III
     Dates: start: 2006
  4. IFOSFAMIDE [Suspect]
     Active Substance: IFOSFAMIDE
     Indication: Follicular lymphoma stage III
     Dates: start: 2006
  5. MESNA [Suspect]
     Active Substance: MESNA
     Indication: Follicular lymphoma stage III
     Dates: start: 2006
  6. LAMIVUDINE [Concomitant]
     Active Substance: LAMIVUDINE
     Dates: end: 200703

REACTIONS (3)
  - Hepatitis B reactivation [Fatal]
  - Hepatic failure [Fatal]
  - Hepatic cirrhosis [Fatal]

NARRATIVE: CASE EVENT DATE: 20070701
